FAERS Safety Report 4874799-4 (Version None)
Quarter: 2006Q1

REPORT INFORMATION
  Report Type: 
  Country: None (occurrence: None)
  Receive Date: 20060104
  Receipt Date: 20051220
  Transmission Date: 20060701
  Serious: Yes (Disabling)
  Sender: FDA-Public Use
  Company Number: 2005157008

PATIENT
  Age: 87 Year
  Sex: Female

DRUGS (9)
  1. LYRICA [Suspect]
     Indication: ILL-DEFINED DISORDER
     Dosage: 150 MG (75 MG, 2 IN 1 D); ORAL
     Route: 048
     Dates: start: 20051102
  2. DIAMICRON (GLICLAZIDE) [Concomitant]
  3. DIABEX (METFORMIN HYDROCHLORIDE) [Concomitant]
  4. RAMIPRIL [Concomitant]
  5. FERRO-GRADUMET (FERROUS SULFATE) [Concomitant]
  6. ALDACTONE [Concomitant]
  7. TENORMIN [Concomitant]
  8. ASPIRIN [Concomitant]
  9. PEPCIDIN (FAMOTIDINE) [Concomitant]

REACTIONS (6)
  - COORDINATION ABNORMAL [None]
  - DEPRESSED LEVEL OF CONSCIOUSNESS [None]
  - DYSSTASIA [None]
  - INCOHERENT [None]
  - MOBILITY DECREASED [None]
  - SOMNOLENCE [None]
